FAERS Safety Report 11277565 (Version 1)
Quarter: 2015Q3

REPORT INFORMATION
  Report Type: Spontaneous
  Country: US (occurrence: US)
  Receive Date: 20150716
  Receipt Date: 20150716
  Transmission Date: 20151125
  Serious: Yes (Other)
  Sender: FDA-Public Use
  Company Number: US-BAXTER-2015BAX038049

PATIENT
  Age: 58 Year
  Sex: Female
  Weight: 72 kg

DRUGS (8)
  1. LIDOCAINE HYDROCHLORIDE AND 5% DEXTROSE INJECTION, USP [Suspect]
     Active Substance: LIDOCAINE HYDROCHLORIDE
     Indication: PRODUCT USED FOR UNKNOWN INDICATION
     Route: 042
  2. PANCURONIUM [Suspect]
     Active Substance: PANCURONIUM
     Indication: PREMEDICATION
     Dosage: DEFASCULATING DOSE
     Route: 065
  3. BLEOMYCIN [Suspect]
     Active Substance: BLEOMYCIN SULFATE
     Indication: CERVIX CARCINOMA STAGE II
     Dosage: TOTAL DOSE OF 30 UNITS
     Route: 065
  4. MITOMYCIN. [Suspect]
     Active Substance: MITOMYCIN
     Indication: CERVIX CARCINOMA STAGE II
     Route: 065
  5. FENTANYL. [Suspect]
     Active Substance: FENTANYL
     Indication: PREMEDICATION
     Route: 065
  6. VINCRISTINE [Suspect]
     Active Substance: VINCRISTINE
     Indication: CERVIX CARCINOMA STAGE II
     Route: 065
  7. DIAZEPAM. [Suspect]
     Active Substance: DIAZEPAM
     Indication: PREMEDICATION
     Route: 048
  8. CISPLATIN. [Suspect]
     Active Substance: CISPLATIN
     Indication: CERVIX CARCINOMA STAGE II
     Route: 065

REACTIONS (4)
  - Sinus bradycardia [Unknown]
  - Bundle branch block left [Recovered/Resolved]
  - Tachycardia [Unknown]
  - Fatigue [Unknown]
